FAERS Safety Report 6757177-2 (Version None)
Quarter: 2010Q2

REPORT INFORMATION
  Report Type: 
  Country: None (occurrence: None)
  Receive Date: 20100607
  Receipt Date: 20100527
  Transmission Date: 20101027
  Serious: Yes (Other)
  Sender: FDA-Public Use
  Company Number: US-BIOGENIDEC-2010BI017567

PATIENT
  Age: 44 Year
  Sex: Female

DRUGS (2)
  1. TYSABRI [Suspect]
     Indication: MULTIPLE SCLEROSIS
     Route: 042
     Dates: start: 20050104, end: 20050228
  2. TYSABRI [Suspect]
     Route: 042
     Dates: start: 20070407

REACTIONS (8)
  - ASTHENIA [None]
  - COMPLEX PARTIAL SEIZURES [None]
  - DEPRESSION [None]
  - DYSARTHRIA [None]
  - FATIGUE [None]
  - MEMORY IMPAIRMENT [None]
  - MENTAL IMPAIRMENT [None]
  - PAIN IN EXTREMITY [None]
